FAERS Safety Report 9827043 (Version 1)
Quarter: 2013Q4

REPORT INFORMATION
  Report Type: Spontaneous
  Country: US (occurrence: None)
  Receive Date: 20131112
  Receipt Date: 20131112
  Transmission Date: 20140711
  Serious: No
  Sender: FDA-Public Use
  Company Number: US-013019

PATIENT
  Age: 76 Year
  Sex: Male

DRUGS (1)
  1. PICO-SALAX [Suspect]
     Indication: BOWEL PREPARATION
     Dosage: TOOK IT IN SPLIT DOSES ORAL
     Route: 048
     Dates: start: 201307, end: 201307

REACTIONS (3)
  - Treatment noncompliance [None]
  - No adverse event [None]
  - Drug ineffective [None]
